FAERS Safety Report 13738689 (Version 1)
Quarter: 2017Q3

REPORT INFORMATION
  Report Type: Report from Study
  Country: US (occurrence: US)
  Receive Date: 20170710
  Receipt Date: 20170710
  Transmission Date: 20171127
  Serious: No
  Sender: FDA-Public Use
  Company Number: US-SAOL THERAPEUTICS-2017SAO00181

PATIENT
  Age: 42 Year
  Sex: Female

DRUGS (8)
  1. CLONIDINE. [Suspect]
     Active Substance: CLONIDINE
     Dosage: 157.38 ?G, \DAY
     Route: 037
     Dates: start: 20131112
  2. BUPIVACAINE. [Suspect]
     Active Substance: BUPIVACAINE
     Dosage: 15.738 MG, \DAY
     Route: 037
     Dates: start: 20131112
  3. COMPOUNDED BACLOFEN [Suspect]
     Active Substance: BACLOFEN
     Dosage: 419.67 ?G, \DAY
     Route: 037
     Dates: start: 20131112
  4. DILAUDID [Suspect]
     Active Substance: HYDROMORPHONE HYDROCHLORIDE
     Dosage: 5.246 MG, \DAY
     Route: 037
     Dates: start: 20131112
  5. DILAUDID [Suspect]
     Active Substance: HYDROMORPHONE HYDROCHLORIDE
     Dosage: 3.793 MG, \DAY
     Route: 037
     Dates: start: 20131112
  6. COMPOUNDED BACLOFEN [Suspect]
     Active Substance: BACLOFEN
     Dosage: 303.47 ?G, \DAY
     Route: 037
     Dates: start: 20131112
  7. BUPIVACAINE. [Suspect]
     Active Substance: BUPIVACAINE
     Dosage: 11.380 MG, \DAY
     Route: 037
     Dates: start: 20131112
  8. CLONIDINE. [Suspect]
     Active Substance: CLONIDINE
     Dosage: 113.8 ?G, \DAY
     Route: 037
     Dates: start: 20131112

REACTIONS (1)
  - Paraesthesia [Recovered/Resolved]

NARRATIVE: CASE EVENT DATE: 20140116
